FAERS Safety Report 8598323-8 (Version None)
Quarter: 2012Q3

REPORT INFORMATION
  Report Type: 
  Country: None (occurrence: None)
  Receive Date: 20120806
  Receipt Date: 20120806
  Transmission Date: 20120928
  Serious: Yes (Life-Threatening, Other)
  Sender: FDA-Public Use
  Company Number: None

PATIENT
  Sex: Female
  Weight: 42.6381 kg

DRUGS (1)
  1. CRESTOR [Suspect]
     Indication: BLOOD CHOLESTEROL INCREASED
     Dosage: 20MG, 1X DAILY, PO
     Route: 048
     Dates: start: 20110412, end: 20120322

REACTIONS (10)
  - PAIN [None]
  - BONE NEOPLASM MALIGNANT [None]
  - MUSCULOSKELETAL CHEST PAIN [None]
  - PARAESTHESIA [None]
  - THROMBOSIS [None]
  - OEDEMA [None]
  - MUSCULOSKELETAL PAIN [None]
  - JOINT SWELLING [None]
  - NECK PAIN [None]
  - PAIN IN EXTREMITY [None]
